FAERS Safety Report 6716336-5 (Version None)
Quarter: 2010Q2

REPORT INFORMATION
  Report Type: 
  Country: None (occurrence: None)
  Receive Date: 20100507
  Receipt Date: 20100428
  Transmission Date: 20101027
  Serious: Yes (Hospitalization, Other)
  Sender: FDA-Public Use
  Company Number: JP-GENZYME-THYM-1001356

PATIENT
  Sex: Male
  Weight: 45 kg

DRUGS (26)
  1. THYMOGLOBULIN [Suspect]
     Indication: KIDNEY TRANSPLANT REJECTION
     Dosage: 1.5 MG/KG, QD
     Route: 042
     Dates: start: 20100128, end: 20100206
  2. ACYCLOVIR SODIUM [Concomitant]
     Indication: ANTIVIRAL PROPHYLAXIS
     Dosage: UNK
     Route: 065
     Dates: start: 20100127, end: 20100202
  3. SULFAMETOXAZOL MED TRIMETOPRIM [Concomitant]
     Indication: DRUG USE FOR UNKNOWN INDICATION
     Route: 065
  4. NORMAL HUMAN IMMUNOGLOBULIN [Concomitant]
     Indication: DRUG USE FOR UNKNOWN INDICATION
     Route: 065
  5. VALGANCICLOVIR HCL [Concomitant]
     Indication: CYTOMEGALOVIRUS INFECTION
     Dosage: 900 MG, UNK
     Dates: start: 20100210
  6. CELLCEPT [Concomitant]
     Indication: IMMUNOSUPPRESSION
     Dosage: UNK
     Dates: start: 20100103
  7. DIPHENHYDRAMINE HYDROCHLORIDE [Concomitant]
     Indication: PREMEDICATION
     Dosage: UNK
     Dates: start: 20100128, end: 20100130
  8. ZOLPIDEM TARTRATE [Concomitant]
     Indication: INSOMNIA
     Dosage: UNK
     Dates: start: 20100122
  9. ACETAMINOPHEN [Concomitant]
     Indication: PREMEDICATION
     Dosage: UNK
     Dates: start: 20100128, end: 20100210
  10. RABEPRAZOLE SODIUM [Concomitant]
     Indication: PROPHYLAXIS AGAINST GASTROINTESTINAL ULCER
     Dosage: UNK
     Dates: start: 20100105
  11. SODIUM ALGINATE [Concomitant]
     Indication: PROPHYLAXIS AGAINST GASTROINTESTINAL ULCER
     Dosage: UNK
     Dates: start: 20100129, end: 20100204
  12. SODIUM BICARBONATE [Concomitant]
     Indication: BLOOD BICARBONATE DECREASED
     Dosage: UNK
     Dates: start: 20100106
  13. MEDROL [Concomitant]
     Indication: PROPHYLAXIS AGAINST TRANSPLANT REJECTION
     Dosage: UNK
     Dates: start: 20100109
  14. PROGRAF [Concomitant]
     Indication: PROPHYLAXIS AGAINST TRANSPLANT REJECTION
     Dosage: UNK
     Dates: start: 20100103
  15. LEVOFLOXACIN [Concomitant]
     Indication: URINARY TRACT INFECTION
     Dosage: UNK
     Dates: start: 20100103, end: 20100204
  16. POTASSIUM SODIUM HYDROGEN CITRATE [Concomitant]
     Indication: BLOOD BICARBONATE DECREASED
     Dosage: UNK
     Dates: start: 20100210
  17. HYDROCORTISONE SODIUM SUCCINATE [Concomitant]
     Indication: PREMEDICATION
     Dosage: UNK
     Dates: start: 20100128, end: 20100130
  18. INITIATION MEDIUM [Concomitant]
     Indication: FLUID INTAKE REDUCED
     Dosage: UNK
     Dates: start: 20100128, end: 20100201
  19. SODIUM CHLORIDE [Concomitant]
     Indication: FLUID INTAKE REDUCED
     Dosage: UNK
     Dates: start: 20100127, end: 20100206
  20. HYDROXYZINE PAMOATE [Concomitant]
     Indication: INSOMNIA
     Dosage: UNK
     Dates: start: 20100128, end: 20100128
  21. DORIPENEM HYDRATE [Concomitant]
     Indication: URINARY TRACT INFECTION
     Dosage: UNK
     Dates: start: 20100129, end: 20100203
  22. SODIUM BICARBONATE [Concomitant]
     Dosage: UNK
     Dates: start: 20100210, end: 20100212
  23. NORMAL HUMAN IMMUNOGLOBULIN [Concomitant]
     Indication: ANTIVIRAL PROPHYLAXIS
     Dosage: UNK
     Dates: start: 20100127, end: 20100129
  24. SIMULECT [Concomitant]
     Indication: IMMUNOSUPPRESSION
  25. CALONAL [Concomitant]
     Indication: PROPHYLAXIS
  26. RESTAMINE [Concomitant]
     Indication: PROPHYLAXIS

REACTIONS (16)
  - ABDOMINAL PAIN [None]
  - BACK PAIN [None]
  - BLOOD CREATININE INCREASED [None]
  - CYTOMEGALOVIRUS INFECTION [None]
  - DECREASED APPETITE [None]
  - DIARRHOEA [None]
  - DYSURIA [None]
  - LYMPHOCYTE COUNT DECREASED [None]
  - LYMPHOPENIA [None]
  - MALAISE [None]
  - PAIN IN EXTREMITY [None]
  - PROCTALGIA [None]
  - PYREXIA [None]
  - TREMOR [None]
  - URINARY TRACT INFECTION [None]
  - WHITE BLOOD CELL COUNT DECREASED [None]
